FAERS Safety Report 17907399 (Version 4)
Quarter: 2020Q3

REPORT INFORMATION
  Report Type: Spontaneous
  Country: US (occurrence: US)
  Receive Date: 20200617
  Receipt Date: 20200902
  Transmission Date: 20201103
  Serious: No
  Sender: FDA-Public Use
  Company Number: US-PFIZER INC-2020230292

PATIENT
  Age: 78 Year
  Sex: Female

DRUGS (1)
  1. GENOTROPIN [Suspect]
     Active Substance: SOMATROPIN
     Indication: HYPOTHALAMO-PITUITARY DISORDER
     Dosage: 1.2 MG (ADMINISTERED ALTERNATING IN SIDES OF STOMACH, HIPS, LEGS, ARMS)
     Dates: start: 1992

REACTIONS (5)
  - Weight increased [Unknown]
  - Device issue [Unknown]
  - Body height decreased [Unknown]
  - Device power source issue [Unknown]
  - Drug dose omission by device [Unknown]

NARRATIVE: CASE EVENT DATE: 2020
